FAERS Safety Report 6251986-4 (Version None)
Quarter: 2009Q2

REPORT INFORMATION
  Report Type: 
  Country: None (occurrence: None)
  Receive Date: 20090630
  Receipt Date: 20050927
  Transmission Date: 20091009
  Serious: Yes (Death, Hospitalization)
  Sender: FDA-Public Use
  Company Number: US-ROCHE-638314

PATIENT
  Sex: Male

DRUGS (20)
  1. ENFUVIRTIDE [Suspect]
     Route: 065
     Dates: start: 20030702, end: 20050927
  2. VIDEX EC [Concomitant]
     Dates: start: 20020802, end: 20050415
  3. VIRAMUNE [Concomitant]
     Dates: start: 20020802, end: 20030101
  4. REYATAZ [Concomitant]
     Dates: start: 20020910, end: 20030101
  5. INVIRASE [Concomitant]
     Dates: start: 20021209, end: 20050415
  6. SUSTIVA [Concomitant]
     Dates: start: 20040927, end: 20050927
  7. APTIVUS [Concomitant]
     Dates: start: 20050415, end: 20050927
  8. KALETRA [Concomitant]
     Dates: start: 20050415, end: 20050927
  9. AUGMENTIN [Concomitant]
     Dates: start: 20030908, end: 20030917
  10. RIFAMPIN [Concomitant]
     Dates: start: 20030908, end: 20030917
  11. DIFLUCAN [Concomitant]
     Dates: start: 20041122, end: 20041203
  12. LEVAQUIN [Concomitant]
     Dates: start: 20041122, end: 20041203
  13. PROTONIX [Concomitant]
     Dates: start: 20041122, end: 20041203
  14. SYNERCID [Concomitant]
     Dates: start: 20041122, end: 20041203
  15. ZITHROMAX [Concomitant]
     Dates: start: 20041122, end: 20041203
  16. RIFAMPIN [Concomitant]
     Dates: start: 20031203, end: 20041212
  17. RIFAMPIN [Concomitant]
     Dates: start: 20050203, end: 20050101
  18. PENTAMIDINE ISETHIONATE [Concomitant]
     Dates: start: 20041228, end: 20041231
  19. CUBICIN [Concomitant]
     Dates: start: 20050203, end: 20050101
  20. LEVAQUIN [Concomitant]
     Dates: start: 20050203, end: 20050101

REACTIONS (13)
  - ACQUIRED IMMUNODEFICIENCY SYNDROME [None]
  - DRUG HYPERSENSITIVITY [None]
  - HEPATIC FAILURE [None]
  - KAPOSI'S SARCOMA [None]
  - MYCOBACTERIAL INFECTION [None]
  - NEUROPATHY PERIPHERAL [None]
  - PROSTATITIS [None]
  - PROTEUS INFECTION [None]
  - RECTAL ABSCESS [None]
  - STAPHYLOCOCCAL INFECTION [None]
  - STAPHYLOCOCCAL SEPSIS [None]
  - URETHRITIS [None]
  - WEIGHT DECREASED [None]
